FAERS Safety Report 17418075 (Version 1)
Quarter: 2020Q1

REPORT INFORMATION
  Report Type: Spontaneous
  Country: GB (occurrence: GB)
  Receive Date: 20200214
  Receipt Date: 20200214
  Transmission Date: 20200409
  Serious: Yes (Disabling)
  Sender: FDA-Public Use
  Company Number: GB-TEVA-2020-GB-1186059

PATIENT
  Age: 86 Year
  Sex: Female
  Weight: 79 kg

DRUGS (10)
  1. QUININE BISULFATE [Concomitant]
     Active Substance: QUININE BISULFATE
  2. NOVOMIX [Concomitant]
     Active Substance: INSULIN ASPART
  3. PARACETAMOL [Concomitant]
     Active Substance: ACETAMINOPHEN
     Dosage: COATED 90%
  4. ACETYLSALICYLIC ACID [Concomitant]
     Active Substance: ASPIRIN
  5. DOXAZOSIN [Suspect]
     Active Substance: DOXAZOSIN MESYLATE
     Indication: RENAL FAILURE
     Dosage: 1 MG
     Route: 048
     Dates: start: 201803, end: 20200126
  6. FELODIPINE. [Concomitant]
     Active Substance: FELODIPINE
  7. FUROSEMIDE SODIUM [Concomitant]
     Active Substance: FUROSEMIDE SODIUM
  8. SODIUM HYDROGEN CARBONATE [Concomitant]
     Active Substance: SODIUM BICARBONATE
  9. ALFACALCIDOL [Concomitant]
     Active Substance: ALFACALCIDOL
  10. FERROUS SULFATE. [Concomitant]
     Active Substance: FERROUS SULFATE

REACTIONS (2)
  - Dyspnoea [Unknown]
  - Tachycardia [Recovering/Resolving]

NARRATIVE: CASE EVENT DATE: 2019
